FAERS Safety Report 9781890 (Version 2)
Quarter: 2014Q1

REPORT INFORMATION
  Report Type: Spontaneous
  Country: IT (occurrence: IT)
  Receive Date: 20131225
  Receipt Date: 20140110
  Transmission Date: 20141002
  Serious: Yes (Death)
  Sender: FDA-Public Use
  Company Number: IT-ACCORD-020915

PATIENT
  Age: 46 Year
  Sex: Female

DRUGS (4)
  1. LEVOFLOXACIN [Suspect]
     Indication: PRODUCT USED FOR UNKNOWN INDICATION
     Dosage: 5 CPR
     Route: 048
     Dates: start: 20131119, end: 20131120
  2. PIPERACILLIN/TAZOBACTAM [Concomitant]
     Route: 042
     Dates: start: 20131120, end: 20131127
  3. ALLOPURINOL [Suspect]
     Indication: PRODUCT USED FOR UNKNOWN INDICATION
     Route: 048
     Dates: start: 20131104, end: 20131120
  4. METRONIDAZOLE [Concomitant]
     Dates: start: 20131120, end: 20131126

REACTIONS (1)
  - Toxic epidermal necrolysis [Fatal]
